FAERS Safety Report 15539740 (Version 2)
Quarter: 2018Q4

REPORT INFORMATION
  Report Type: Spontaneous
  Country: IL (occurrence: IL)
  Receive Date: 20181023
  Receipt Date: 20181029
  Transmission Date: 20190205
  Serious: Yes (Hospitalization, Other)
  Sender: FDA-Public Use
  Company Number: IL-ROCHE-2051603

PATIENT
  Age: 41 Year
  Sex: Female

DRUGS (22)
  1. PREDNISONE. [Suspect]
     Active Substance: PREDNISONE
     Indication: PEMPHIGUS
     Route: 065
  2. PREDNISONE. [Suspect]
     Active Substance: PREDNISONE
     Route: 065
     Dates: start: 20180108
  3. DEXACORT (ISRAEL) [Concomitant]
     Indication: HERPES VIRUS INFECTION
  4. BICARBONATE (SODIUM BICARBONATE) [Concomitant]
     Active Substance: SODIUM BICARBONATE
  5. OXYCODONE [Concomitant]
     Active Substance: OXYCODONE
     Route: 065
  6. PREDNISONE. [Suspect]
     Active Substance: PREDNISONE
     Route: 065
  7. TRICANIX [Concomitant]
     Route: 065
  8. RAFAPEN [Concomitant]
  9. ACAMOL [Concomitant]
     Active Substance: ACETAMINOPHEN
     Route: 065
  10. MABTHERA [Suspect]
     Active Substance: RITUXIMAB
     Route: 042
     Dates: start: 20171211
  11. NYSTATIN. [Concomitant]
     Active Substance: NYSTATIN
  12. HYLO-COMOD [Concomitant]
     Active Substance: HYALURONATE SODIUM
     Route: 047
  13. DEXACORT (DEXAMETHASONE) [Concomitant]
  14. OPTALGIN [Concomitant]
     Active Substance: METAMIZOLE
  15. IMURAN [Suspect]
     Active Substance: AZATHIOPRINE
     Indication: PEMPHIGUS
     Route: 065
  16. LYTEERS [Concomitant]
     Route: 047
  17. MABTHERA [Suspect]
     Active Substance: RITUXIMAB
     Indication: PEMPHIGUS
     Route: 042
  18. PREDNISONE. [Suspect]
     Active Substance: PREDNISONE
     Route: 065
     Dates: start: 20180416
  19. OMEPRADEX [Concomitant]
     Active Substance: OMEPRAZOLE
     Indication: DYSPEPSIA
     Route: 048
  20. TEARS NATURALE FREE [Concomitant]
     Active Substance: DEXTRAN 70\HYPROMELLOSE 2910 (4000 MPA.S)
     Route: 047
  21. PREDNISONE. [Suspect]
     Active Substance: PREDNISONE
     Route: 065
     Dates: start: 20171224
  22. VALTREX [Concomitant]
     Active Substance: VALACYCLOVIR HYDROCHLORIDE
     Indication: HERPES VIRUS INFECTION
     Route: 065
     Dates: start: 20180416

REACTIONS (18)
  - Lip ulceration [Unknown]
  - Oral mucosa erosion [Unknown]
  - Dysphagia [Unknown]
  - Tongue ulceration [Unknown]
  - Vomiting [Unknown]
  - Infusion related reaction [Unknown]
  - Nasal injury [Unknown]
  - Off label use [Unknown]
  - Herpes virus infection [Recovering/Resolving]
  - Dysphagia [Recovering/Resolving]
  - Gingivitis [Recovered/Resolved]
  - Haematemesis [Recovered/Resolved]
  - Intentional product use issue [Unknown]
  - Ocular hyperaemia [Recovered/Resolved]
  - Conjunctivitis [Recovered/Resolved]
  - Pemphigus [Unknown]
  - Dyspepsia [Unknown]
  - Weight decreased [Unknown]

NARRATIVE: CASE EVENT DATE: 20180123
